FAERS Safety Report 17731333 (Version 1)
Quarter: 2020Q2

REPORT INFORMATION
  Report Type: Spontaneous
  Country: US (occurrence: US)
  Receive Date: 20200430
  Receipt Date: 20200430
  Transmission Date: 20200714
  Serious: No
  Sender: FDA-Public Use
  Company Number: US-AKCEA THERAPEUTICS-2020IS001050

PATIENT

DRUGS (1)
  1. TEGSEDI [Suspect]
     Active Substance: INOTERSEN SODIUM
     Indication: HEREDITARY NEUROPATHIC AMYLOIDOSIS
     Dosage: 284 MG, QW
     Route: 058
     Dates: start: 20191212

REACTIONS (13)
  - Injection site pruritus [Recovered/Resolved]
  - Injection site haemorrhage [Unknown]
  - Injection site mass [Unknown]
  - Dizziness [Not Recovered/Not Resolved]
  - Injection site erythema [Recovered/Resolved]
  - Vertigo [Recovered/Resolved]
  - Device difficult to use [Unknown]
  - Wrong technique in product usage process [Unknown]
  - Urinary tract infection [Recovering/Resolving]
  - Orthostatic hypotension [Unknown]
  - Malaise [Not Recovered/Not Resolved]
  - Product dose omission [Not Recovered/Not Resolved]
  - Injection site extravasation [Unknown]
